FAERS Safety Report 25087258 (Version 1)
Quarter: 2025Q1

REPORT INFORMATION
  Report Type: Spontaneous
  Country: US (occurrence: US)
  Receive Date: 20250318
  Receipt Date: 20250318
  Transmission Date: 20250408
  Serious: No
  Sender: LEO PHARM
  Company Number: US-LEO Pharma-378398

PATIENT
  Age: 57 Year
  Sex: Female

DRUGS (2)
  1. ADBRY [Suspect]
     Active Substance: TRALOKINUMAB-LDRM
     Indication: Dermatitis atopic
     Dosage: DOSE/FREQUENCY: INJECT 2 PENS (600MG) SUBCUTANEOUSLY ON DAY 1 THEN 1 PEN EVERY 2 WEEKS.
     Route: 058
  2. ADBRY [Suspect]
     Active Substance: TRALOKINUMAB-LDRM
     Indication: Dermatitis atopic
     Route: 058
     Dates: start: 20250305

REACTIONS (2)
  - Injection site pruritus [Unknown]
  - Injection site erythema [Unknown]
